FAERS Safety Report 7287109-2 (Version None)
Quarter: 2011Q1

REPORT INFORMATION
  Report Type: 
  Country: None (occurrence: None)
  Receive Date: 20110211
  Receipt Date: 20110127
  Transmission Date: 20110831
  Serious: Yes (Other)
  Sender: FDA-Public Use
  Company Number: US-ROCHE-458672

PATIENT
  Sex: Male
  Weight: 83 kg

DRUGS (1)
  1. ACCUTANE [Suspect]
     Route: 065
     Dates: start: 19940728, end: 19941101

REACTIONS (18)
  - HYPERAEMIA [None]
  - SKIN EXFOLIATION [None]
  - HAEMORRHOIDS [None]
  - BLOOD CHOLESTEROL INCREASED [None]
  - BLOOD IRON DECREASED [None]
  - COLITIS ULCERATIVE [None]
  - POUCHITIS [None]
  - ANAEMIA [None]
  - POSTOPERATIVE FEVER [None]
  - DRUG DEPENDENCE [None]
  - INTESTINAL POLYP [None]
  - ABSCESS [None]
  - MASS [None]
  - OSTEOPENIA [None]
  - ARTHRITIS [None]
  - ERYTHEMA [None]
  - PLATELET COUNT INCREASED [None]
  - PROCTITIS ULCERATIVE [None]
